FAERS Safety Report 9341116 (Version 2)
Quarter: 2013Q2

REPORT INFORMATION
  Report Type: Spontaneous
  Country: US (occurrence: US)
  Receive Date: 20130610
  Receipt Date: 20130626
  Transmission Date: 20140414
  Serious: No
  Sender: FDA-Public Use
  Company Number: US-009507513-1306USA004029

PATIENT
  Age: 57 Year
  Sex: Male

DRUGS (2)
  1. PEGINTRON [Suspect]
     Indication: HEPATITIS C
     Dosage: REDIPEN, DOSE FORM UNKNOWN
     Dates: start: 20130601
  2. REBETOL [Suspect]
     Indication: HEPATITIS C
     Dosage: UNK
     Route: 048
     Dates: start: 20130601

REACTIONS (7)
  - Intermittent claudication [Unknown]
  - Decreased appetite [Unknown]
  - Fatigue [Unknown]
  - Myalgia [Unknown]
  - Influenza like illness [Unknown]
  - Arthralgia [Unknown]
  - Poor quality sleep [Unknown]
